FAERS Safety Report 25886639 (Version 3)
Quarter: 2025Q4

REPORT INFORMATION
  Report Type: Report from Study
  Country: KR (occurrence: KR)
  Receive Date: 20251006
  Receipt Date: 20251110
  Transmission Date: 20260118
  Serious: Yes (Hospitalization)
  Sender: MYLAN
  Company Number: KR-MYLANLABS-2025M1075309

PATIENT
  Age: 84 Year
  Sex: Female
  Weight: 44.8 kg

DRUGS (17)
  1. PRETOMANID [Suspect]
     Active Substance: PRETOMANID
     Indication: Tuberculosis
     Dosage: 200 MILLIGRAM, QD
     Dates: start: 20250820, end: 20250902
  2. PRETOMANID [Suspect]
     Active Substance: PRETOMANID
     Dosage: UNK
  3. BEDAQUILINE [Suspect]
     Active Substance: BEDAQUILINE
     Indication: Tuberculosis
     Dosage: 400 MILLIGRAM, QD
     Dates: start: 20250820, end: 20250902
  4. BEDAQUILINE [Suspect]
     Active Substance: BEDAQUILINE
     Dosage: 200 MILLIGRAM, TID
     Dates: start: 20250905, end: 20250905
  5. BEDAQUILINE [Suspect]
     Active Substance: BEDAQUILINE
     Dosage: UNK
  6. LINEZOLID [Suspect]
     Active Substance: LINEZOLID
     Indication: Tuberculosis
     Dosage: 600 MILLIGRAM, QD
     Dates: start: 20250820, end: 20250902
  7. LINEZOLID [Suspect]
     Active Substance: LINEZOLID
     Dosage: UNK
  8. MOXIFLOXACIN [Suspect]
     Active Substance: MOXIFLOXACIN
     Indication: Product used for unknown indication
     Dosage: UNK
  9. Vasatan [Concomitant]
     Indication: Hypertension
     Dosage: 40 MILLIGRAM, QD
     Dates: start: 2025
  10. SPIRONOLACTONE [Concomitant]
     Active Substance: SPIRONOLACTONE
     Indication: Hypertension
     Dosage: UNK, QD (25)
     Dates: start: 2025
  11. Dichlozid [Concomitant]
     Indication: Hypertension
     Dosage: 25 MILLIGRAM, QD
     Dates: start: 2025
  12. Rovaid [Concomitant]
     Indication: Hyperlipidaemia
     Dosage: 5 MILLIGRAM, QD
     Dates: start: 2025
  13. Memo [Concomitant]
     Indication: Hyperlipidaemia
     Dosage: UNK, BID
     Dates: start: 2025
  14. HERBALS [Concomitant]
     Active Substance: HERBALS
     Indication: Prophylaxis
     Dosage: UNK, BID
     Dates: start: 2025
  15. CELEBREX [Concomitant]
     Active Substance: CELECOXIB
     Indication: Osteoarthritis
     Dosage: 100 MILLIGRAM, BID
     Dates: start: 2025
  16. PYRIDOXINE [Concomitant]
     Active Substance: PYRIDOXINE
     Indication: Prophylaxis
     Dosage: 100 MILLIGRAM, QD
     Dates: start: 20250804
  17. METOCLOPRAMIDE HYDROCHLORIDE [Concomitant]
     Active Substance: METOCLOPRAMIDE HYDROCHLORIDE
     Indication: Prophylaxis
     Dosage: UNK, TID
     Dates: start: 20250825

REACTIONS (4)
  - Gastrointestinal disorder [Recovered/Resolved]
  - Nausea [Not Recovered/Not Resolved]
  - Vomiting [Recovered/Resolved]
  - Sputum increased [Recovered/Resolved]

NARRATIVE: CASE EVENT DATE: 20250821
